FAERS Safety Report 26202408 (Version 1)
Quarter: 2025Q4

REPORT INFORMATION
  Report Type: Spontaneous
  Country: EU (occurrence: EU)
  Receive Date: 20251226
  Receipt Date: 20251226
  Transmission Date: 20260118
  Serious: Yes (Other)
  Sender: Onesource Specialty Pharma
  Company Number: EU-STRIDES ARCOLAB LIMITED-2025OS001554

PATIENT
  Age: 82 Year
  Sex: Female

DRUGS (3)
  1. IBUPROFEN [Suspect]
     Active Substance: IBUPROFEN
     Indication: Pain management
     Dosage: UNK
     Route: 065
  2. MELOXICAM [Suspect]
     Active Substance: MELOXICAM
     Indication: Pain management
     Dosage: UNK
     Route: 065
  3. ACETAMINOPHEN [Suspect]
     Active Substance: ACETAMINOPHEN
     Indication: Pain management
     Dosage: UNK
     Route: 065

REACTIONS (1)
  - Peptic ulcer [Unknown]
